FAERS Safety Report 21918926 (Version 1)
Quarter: 2023Q1

REPORT INFORMATION
  Report Type: Spontaneous
  Country: US (occurrence: US)
  Receive Date: 20230127
  Receipt Date: 20230127
  Transmission Date: 20230417
  Serious: Yes (Other)
  Sender: FDA-Public Use
  Company Number: US-CIPLA LTD.-2023US00315

PATIENT
  Sex: Male

DRUGS (30)
  1. BUPROPION [Suspect]
     Active Substance: BUPROPION
     Indication: Major depression
     Dosage: 150 MILLIGRAM, QD ONCE PER DAY
     Route: 048
     Dates: start: 20150827, end: 20150909
  2. BUPROPION [Suspect]
     Active Substance: BUPROPION
     Indication: Generalised anxiety disorder
     Dosage: 300 MILLIGRAM, QD ONCE PER DAY
     Route: 048
     Dates: start: 20150909, end: 20151209
  3. BUPROPION [Suspect]
     Active Substance: BUPROPION
     Dosage: 150 MILLIGRAM, QD ONCE PER DAY
     Route: 048
     Dates: start: 20151209, end: 20160108
  4. BUPROPION [Suspect]
     Active Substance: BUPROPION
     Dosage: 300 MILLIGRAM, QD ONCE PER DAY
     Route: 048
     Dates: start: 20160108, end: 20161219
  5. BUPROPION [Suspect]
     Active Substance: BUPROPION
     Dosage: 150 MILLIGRAM, QD ONCE PER DAY
     Route: 048
     Dates: start: 20161219, end: 20170127
  6. BUPROPION [Suspect]
     Active Substance: BUPROPION
     Dosage: 150 MILLIGRAM, QD ONCE PER DAY
     Route: 048
     Dates: start: 20200520, end: 20210112
  7. SERTRALINE [Suspect]
     Active Substance: SERTRALINE HYDROCHLORIDE
     Indication: Major depression
     Dosage: 50 MILLIGRAM, QD ONCE PERDAY
     Route: 048
     Dates: start: 20151209, end: 20160302
  8. SERTRALINE [Suspect]
     Active Substance: SERTRALINE HYDROCHLORIDE
     Indication: Generalised anxiety disorder
     Dosage: 75 MILLIGRAM, QD ONCE PER DAY
     Route: 048
     Dates: start: 20160302, end: 20160314
  9. SERTRALINE [Suspect]
     Active Substance: SERTRALINE HYDROCHLORIDE
     Dosage: 100 MILLIGRAM, QD ONCE PER DAY
     Route: 048
     Dates: start: 20160314, end: 20171017
  10. VORTIOXETINE [Suspect]
     Active Substance: VORTIOXETINE
     Indication: Major depression
     Dosage: 10 MILLIGRAM, QD ONCE PER DAY
     Route: 048
     Dates: start: 20171017, end: 20200520
  11. ZOLPIDEM TARTRATE [Suspect]
     Active Substance: ZOLPIDEM TARTRATE
     Indication: Insomnia
     Dosage: 5 MILLIGRAM QD ONCE PER DAY IN THE EVENING AS NEEDED
     Route: 048
     Dates: start: 20160108, end: 20160302
  12. AMITRIPTYLINE [Suspect]
     Active Substance: AMITRIPTYLINE
     Indication: Major depression
     Dosage: 25 MILLIGRAM, QD ONCE PER DAY
     Route: 048
     Dates: start: 20161028, end: 20161128
  13. AMITRIPTYLINE [Suspect]
     Active Substance: AMITRIPTYLINE
     Indication: Generalised anxiety disorder
  14. DULOXETINE [Suspect]
     Active Substance: DULOXETINE
     Indication: Major depression
     Dosage: 30 MILLIGRAM, QD ONCE PER DAY
     Route: 048
     Dates: start: 20200429, end: 20201020
  15. DULOXETINE [Suspect]
     Active Substance: DULOXETINE
     Indication: Generalised anxiety disorder
     Dosage: 60 MILLIGRAM, QD ONCE PER DAY
     Route: 048
     Dates: start: 20201020, end: 20201210
  16. CLONAZEPAM [Suspect]
     Active Substance: CLONAZEPAM
     Indication: Generalised anxiety disorder
     Dosage: 0.5 MILLIGRAM PRN UP TO TWICE DAILY AS NEEDED
     Route: 048
     Dates: start: 20150827, end: 20150917
  17. KETAMINE [Concomitant]
     Active Substance: KETAMINE
     Indication: Suicidal ideation
     Dosage: UNK (0.9 MG/KG/H)
     Route: 042
     Dates: start: 20201210
  18. KETAMINE [Concomitant]
     Active Substance: KETAMINE
     Indication: Major depression
     Dosage: UNK (1.1 MG/KG/H)
     Route: 042
     Dates: start: 20201215
  19. KETAMINE [Concomitant]
     Active Substance: KETAMINE
     Indication: Post-traumatic stress disorder
     Dosage: UNK (1.2 MG/KG/H)
     Route: 042
     Dates: start: 20201217
  20. KETAMINE [Concomitant]
     Active Substance: KETAMINE
     Indication: Generalised anxiety disorder
     Dosage: UNK ( 1.4 MG/KG/H)
     Route: 042
     Dates: start: 20210109
  21. KETAMINE [Concomitant]
     Active Substance: KETAMINE
     Dosage: UNK ( 1.6 MG/KG/H)
     Route: 042
     Dates: start: 20210211
  22. KETAMINE [Concomitant]
     Active Substance: KETAMINE
     Dosage: UNK ( 1.4 MG/KG/H)
     Route: 042
     Dates: start: 20210306
  23. KETAMINE [Concomitant]
     Active Substance: KETAMINE
     Dosage: UNK ( 1.7 MG/KG/H)
     Route: 042
     Dates: start: 20210407
  24. KETAMINE [Concomitant]
     Active Substance: KETAMINE
     Dosage: UNK ( 2.1 MG/KG/H)
     Route: 042
     Dates: start: 20210513
  25. KETAMINE [Concomitant]
     Active Substance: KETAMINE
     Dosage: UNK (0.5 MG/KG/H)
     Route: 042
     Dates: start: 20210529
  26. KETAMINE [Concomitant]
     Active Substance: KETAMINE
     Dosage: UNK (1.0 MG/KG/H)
     Route: 042
     Dates: start: 20210617
  27. KETAMINE [Concomitant]
     Active Substance: KETAMINE
     Dosage: UNK (1.2 MG/KG/H)
     Route: 042
     Dates: start: 20210626
  28. KETAMINE [Concomitant]
     Active Substance: KETAMINE
     Dosage: UNK (1.6 MG/KG/H)
     Route: 042
     Dates: start: 20210707
  29. KETAMINE [Concomitant]
     Active Substance: KETAMINE
     Dosage: UNK (1.6 MG/KG/H)
     Route: 042
     Dates: start: 20210714
  30. KETAMINE [Concomitant]
     Active Substance: KETAMINE
     Dosage: UNK (1.6 MG/KG/H)
     Route: 042
     Dates: start: 20210727

REACTIONS (3)
  - Drug ineffective [Unknown]
  - Adverse drug reaction [Unknown]
  - Treatment noncompliance [Unknown]
